FAERS Safety Report 8384340-X (Version None)
Quarter: 2012Q2

REPORT INFORMATION
  Report Type: 
  Country: None (occurrence: None)
  Receive Date: 20120524
  Receipt Date: 20120514
  Transmission Date: 20120825
  Serious: Yes (Hospitalization, Other)
  Sender: FDA-Public Use
  Company Number: US-ELI_LILLY_AND_COMPANY-US201009003350

PATIENT
  Sex: Female
  Weight: 98.8 kg

DRUGS (12)
  1. FORTEO [Suspect]
     Dosage: 20 UG, DAILY (1/D)
     Dates: start: 20100831
  2. OXYGEN [Concomitant]
     Indication: SLEEP APNOEA SYNDROME
     Dosage: UNK, EACH EVENING
  3. LEVOTHYROXINE SODIUM [Concomitant]
     Indication: THYROID DISORDER
     Dosage: UNK
  4. FORTEO [Suspect]
     Dosage: 20 UG, DAILY (1/D)
     Dates: start: 20100831
  5. VITAMIN D [Concomitant]
     Indication: BLOOD COUNT ABNORMAL
     Dosage: UNK
     Dates: start: 20100401
  6. FERROUS SULFATE TAB [Concomitant]
     Dosage: UNK
  7. FORTEO [Suspect]
     Indication: OSTEOPOROSIS
     Dosage: 20 UG, DAILY (1/D)
     Dates: start: 20100831
  8. IRON [Concomitant]
     Indication: BLOOD COUNT ABNORMAL
     Dosage: UNK
     Dates: start: 20100401
  9. FORTEO [Suspect]
     Dosage: 20 UG, DAILY (1/D)
     Dates: start: 20100831
  10. ASCORBIC ACID [Concomitant]
     Indication: BLOOD COUNT ABNORMAL
     Dosage: UNK
     Dates: start: 20100401
  11. TYLENOL                                 /SCH/ [Concomitant]
     Indication: ARTHRITIS
     Dosage: UNK
  12. NEXIUM [Concomitant]
     Indication: GASTROOESOPHAGEAL REFLUX DISEASE
     Dosage: UNK

REACTIONS (18)
  - BRONCHITIS [None]
  - OXYGEN SATURATION DECREASED [None]
  - INJECTION SITE PAIN [None]
  - INJECTION SITE ERYTHEMA [None]
  - NAUSEA [None]
  - PAIN IN EXTREMITY [None]
  - PNEUMOTHORAX [None]
  - INJECTION SITE HAEMATOMA [None]
  - MEMORY IMPAIRMENT [None]
  - PNEUMONIA [None]
  - LOSS OF CONSCIOUSNESS [None]
  - ANAEMIA [None]
  - ARTHRITIS [None]
  - MALAISE [None]
  - FATIGUE [None]
  - LIMB DISCOMFORT [None]
  - DEHYDRATION [None]
  - HEADACHE [None]
